FAERS Safety Report 4827833-1 (Version None)
Quarter: 2005Q4

REPORT INFORMATION
  Report Type: 
  Country: None (occurrence: None)
  Receive Date: 20051114
  Receipt Date: 20051114
  Transmission Date: 20060501
  Serious: Yes (Hospitalization)
  Sender: FDA-Public Use
  Company Number: None

PATIENT
  Age: 50 Year
  Sex: Female

DRUGS (6)
  1. NITROFURANTOIN [Suspect]
     Indication: INFECTION PROPHYLAXIS
     Dosage: 100 MG  DAILY AT BEDTIME  PO  ( 8 DAYS AND THEN 1 DAY)
     Route: 048
  2. NITROFURANTOIN [Suspect]
     Indication: URINARY TRACT INFECTION
     Dosage: 100 MG  DAILY AT BEDTIME  PO  ( 8 DAYS AND THEN 1 DAY)
     Route: 048
  3. NITROFURANTOIN [Suspect]
     Indication: INFECTION PROPHYLAXIS
     Dosage: 100 MG  DAILY AT BEDTIME  PO  ( 8 DAYS AND THEN 1 DAY)
     Route: 048
  4. NITROFURANTOIN [Suspect]
     Indication: URINARY TRACT INFECTION
     Dosage: 100 MG  DAILY AT BEDTIME  PO  ( 8 DAYS AND THEN 1 DAY)
     Route: 048
  5. NICOTINE LOZENGE [Concomitant]
  6. ESTRADIOL INJ [Concomitant]

REACTIONS (8)
  - ABDOMINAL PAIN UPPER [None]
  - BURNING SENSATION [None]
  - CHEST DISCOMFORT [None]
  - CHEST PAIN [None]
  - NAUSEA [None]
  - PNEUMONIA [None]
  - PULMONARY TOXICITY [None]
  - VOMITING [None]
